FAERS Safety Report 8429655 (Version 3)
Quarter: 2019Q1

REPORT INFORMATION
  Report Type: Spontaneous
  Country: US (occurrence: US)
  Receive Date: 20120227
  Receipt Date: 20190311
  Transmission Date: 20190418
  Serious: Yes (Other)
  Sender: FDA-Public Use
  Company Number: US-ASTRAZENECA-2010SE41714

PATIENT
  Age: 73 Year
  Sex: Female
  Weight: 55.8 kg

DRUGS (5)
  1. NEXIUM [Suspect]
     Active Substance: ESOMEPRAZOLE MAGNESIUM
     Route: 048
  2. ARIMIDEX [Suspect]
     Active Substance: ANASTROZOLE
     Indication: BREAST CANCER
     Route: 048
     Dates: start: 2000, end: 201901
  3. FASLODEX [Suspect]
     Active Substance: FULVESTRANT
     Indication: BREAST CANCER
     Route: 030
     Dates: start: 201901
  4. IBRANCE [Suspect]
     Active Substance: PALBOCICLIB
     Indication: BREAST CANCER
     Route: 048
     Dates: start: 201901
  5. ZOMETA [Concomitant]
     Active Substance: ZOLEDRONIC ACID
     Route: 042

REACTIONS (17)
  - Arthralgia [Unknown]
  - Intestinal metastasis [Unknown]
  - Abdominal distension [Unknown]
  - Drug ineffective [Unknown]
  - Metastases to bone [Unknown]
  - Gastric disorder [Unknown]
  - Thrombosis [Unknown]
  - Drug intolerance [Unknown]
  - Metastases to liver [Unknown]
  - Insomnia [Unknown]
  - Hypothyroidism [Unknown]
  - White blood cell count decreased [Unknown]
  - Product dose omission [Unknown]
  - Fall [Unknown]
  - Fatigue [Unknown]
  - Adverse event [Unknown]
  - Gastrooesophageal reflux disease [Unknown]

NARRATIVE: CASE EVENT DATE: 2000
